FAERS Safety Report 21569796 (Version 2)
Quarter: 2023Q1

REPORT INFORMATION
  Report Type: Spontaneous
  Country: GB (occurrence: GB)
  Receive Date: 20221109
  Receipt Date: 20230201
  Transmission Date: 20230418
  Serious: Yes (Hospitalization, Other)
  Sender: FDA-Public Use
  Company Number: GB-CELLTRION INC.-2022GB018305

PATIENT

DRUGS (1)
  1. INFLIXIMAB [Suspect]
     Active Substance: INFLIXIMAB
     Indication: Crohn^s disease
     Dosage: REMSIMA 120MG/1ML PREFILLED PEN/ 120MG PFP
     Route: 058

REACTIONS (3)
  - Hospitalisation [Unknown]
  - Drug-induced liver injury [Unknown]
  - Intentional dose omission [Unknown]
